FAERS Safety Report 5594029-8 (Version None)
Quarter: 2008Q1

REPORT INFORMATION
  Report Type: 
  Country: None (occurrence: None)
  Receive Date: 20080116
  Receipt Date: 20080111
  Transmission Date: 20080703
  Serious: Yes (Hospitalization)
  Sender: FDA-Public Use
  Company Number: AU-MERCK-0801AUS00076

PATIENT
  Age: 78 Year
  Sex: Male

DRUGS (3)
  1. FOSAMAX [Suspect]
     Route: 048
     Dates: end: 20071101
  2. [THERAPY UNSPECIFIED] [Concomitant]
     Indication: HYPERTENSION
     Route: 065
  3. CALCIUM (UNSPECIFIED) [Concomitant]
     Route: 065

REACTIONS (2)
  - FALL [None]
  - PELVIC FRACTURE [None]
